FAERS Safety Report 7397478-0 (Version None)
Quarter: 2011Q2

REPORT INFORMATION
  Report Type: 
  Country: None (occurrence: None)
  Receive Date: 20110401
  Receipt Date: 20110401
  Transmission Date: 20111010
  Serious: Yes (Other)
  Sender: FDA-Public Use
  Company Number: None

PATIENT
  Age: 57 Year
  Sex: Female
  Weight: 44.4525 kg

DRUGS (1)
  1. AMLODIPINE [Suspect]
     Indication: HYPERTENSION
     Dosage: 2.5 MG ONCE DAILY MAY 2010 - OCT OR NOV. 2010

REACTIONS (4)
  - GINGIVAL SWELLING [None]
  - FATIGUE [None]
  - GINGIVAL RECESSION [None]
  - GINGIVAL BLEEDING [None]
